FAERS Safety Report 4389732-1 (Version None)
Quarter: 2004Q2

REPORT INFORMATION
  Report Type: 
  Country: None (occurrence: None)
  Receive Date: 20040629
  Receipt Date: 20031007
  Transmission Date: 20050107
  Serious: Yes (Hospitalization)
  Sender: FDA-Public Use
  Company Number: US-JNJFOC-20030700438

PATIENT
  Age: 73 Year
  Sex: Female

DRUGS (8)
  1. DURAGESIC [Suspect]
     Indication: PAIN
     Dosage: 25 UG/HR, 1 IN 72 HOUR, TRANSDERMAL
     Route: 062
     Dates: start: 20030201, end: 20030701
  2. METOPROLOL (METOPROLOL) [Concomitant]
  3. LIPITOR [Concomitant]
  4. DETROL LA (TOLTERODINE L-TARTRATE) [Concomitant]
  5. CELEBREX [Concomitant]
  6. LEVOXYL [Concomitant]
  7. FLONASE [Concomitant]
  8. LOPRESSOR [Concomitant]

REACTIONS (6)
  - ANXIETY [None]
  - BALANCE DISORDER [None]
  - CONDITION AGGRAVATED [None]
  - CONTUSION [None]
  - DYSPNOEA [None]
  - FALL [None]
